FAERS Safety Report 5899268-4 (Version None)
Quarter: 2008Q3

REPORT INFORMATION
  Report Type: 
  Country: None (occurrence: None)
  Receive Date: 20080828
  Receipt Date: 20080310
  Transmission Date: 20090109
  Serious: Yes (Other)
  Sender: FDA-Public Use
  Company Number: CIP08000408

PATIENT
  Sex: Male

DRUGS (1)
  1. ASACOL [Suspect]
     Indication: INFLAMMATORY BOWEL DISEASE

REACTIONS (1)
  - RENAL FAILURE [None]
